FAERS Safety Report 5676860-3 (Version None)
Quarter: 2008Q1

REPORT INFORMATION
  Report Type: 
  Country: None (occurrence: None)
  Receive Date: 20080324
  Receipt Date: 20080310
  Transmission Date: 20080703
  Serious: Yes (Hospitalization)
  Sender: FDA-Public Use
  Company Number: DE-ELI_LILLY_AND_COMPANY-DE200603002281

PATIENT
  Age: 34 Year
  Sex: Female

DRUGS (8)
  1. ZYPREXA [Suspect]
     Indication: PSYCHOTIC DISORDER
     Dosage: 20 MG, DAILY (1/D)
     Route: 048
     Dates: start: 20030901
  2. ZYPREXA [Interacting]
     Indication: PSYCHOTIC DISORDER
     Dosage: 20 MG, DAILY (1/D)
     Route: 048
  3. TRIMIPRAMINE MALEATE [Concomitant]
     Indication: SLEEP DISORDER
     Dosage: 150 MG, DAILY (1/D)
     Route: 065
  4. MIRTAZAPINE [Concomitant]
     Dosage: 45 MG, DAILY (1/D)
     Route: 065
     Dates: start: 20060207
  5. MIRTAZAPINE [Concomitant]
     Dosage: 30 MG, DAILY (1/D)
     Route: 065
     Dates: start: 20060101
  6. LAMOTRIGINE [Concomitant]
     Dosage: 25 MG, DAILY (1/D)
     Route: 065
     Dates: start: 20060207
  7. LAMOTRIGINE [Concomitant]
     Dosage: 150 MG, DAILY (1/D)
     Route: 065
  8. QUILONUM [Concomitant]

REACTIONS (4)
  - DRUG INTERACTION [None]
  - HOSPITALISATION [None]
  - PREMENSTRUAL SYNDROME [None]
  - WEIGHT DECREASED [None]
